FAERS Safety Report 8563633-7 (Version None)
Quarter: 2012Q3

REPORT INFORMATION
  Report Type: 
  Country: None (occurrence: None)
  Receive Date: 20120803
  Receipt Date: 20120724
  Transmission Date: 20120928
  Serious: Yes (Death, Hospitalization, Other)
  Sender: FDA-Public Use
  Company Number: IT-BIOGENIDEC-2012BI026546

PATIENT
  Age: 30 Year
  Sex: Female

DRUGS (2)
  1. LAMOTRIGINE [Concomitant]
  2. TYSABRI [Suspect]
     Indication: MULTIPLE SCLEROSIS
     Route: 042
     Dates: start: 20070101, end: 20120601

REACTIONS (5)
  - MULTI-ORGAN DISORDER [None]
  - EPILEPSY [None]
  - FUNGAL SEPSIS [None]
  - URINARY TRACT INFECTION FUNGAL [None]
  - TRANSAMINASES INCREASED [None]
